FAERS Safety Report 5742133-3 (Version None)
Quarter: 2008Q2

REPORT INFORMATION
  Report Type: 
  Country: None (occurrence: None)
  Receive Date: 20080519
  Receipt Date: 20080515
  Transmission Date: 20081010
  Serious: Yes (Hospitalization)
  Sender: FDA-Public Use
  Company Number: FR-BRISTOL-MYERS SQUIBB COMPANY-14019996

PATIENT
  Age: 56 Year
  Sex: Male

DRUGS (3)
  1. CISPLATIN [Suspect]
     Indication: HEAD AND NECK CANCER
     Route: 042
     Dates: start: 20070612
  2. PLACEBO [Suspect]
     Indication: HEAD AND NECK CANCER
     Route: 048
     Dates: start: 20070604
  3. RADIOTHERAPY [Suspect]
     Indication: HEAD AND NECK CANCER
     Route: 061
     Dates: start: 20070611

REACTIONS (2)
  - ANAEMIA [None]
  - HAEMORRHAGE [None]
